FAERS Safety Report 7045668-9 (Version None)
Quarter: 2010Q4

REPORT INFORMATION
  Report Type: 
  Country: None (occurrence: None)
  Receive Date: 20101014
  Receipt Date: 20101012
  Transmission Date: 20110411
  Serious: Yes (Life-Threatening, Hospitalization)
  Sender: FDA-Public Use
  Company Number: DE-ROCHE-733570

PATIENT
  Sex: Female
  Weight: 65 kg

DRUGS (3)
  1. ROACTEMRA [Suspect]
     Indication: RHEUMATOID ARTHRITIS
     Route: 042
     Dates: start: 20100104, end: 20100916
  2. LYRICA [Concomitant]
     Indication: POLYNEUROPATHY
     Route: 048
     Dates: start: 20080409
  3. CYMBALTA [Concomitant]
     Indication: DEPRESSION
     Route: 048
     Dates: start: 20080409

REACTIONS (1)
  - BREAST CANCER [None]
